FAERS Safety Report 18051872 (Version 3)
Quarter: 2020Q4

REPORT INFORMATION
  Report Type: Report from Study
  Country: None (occurrence: US)
  Receive Date: 20200722
  Receipt Date: 20201123
  Transmission Date: 20210113
  Serious: Yes (Other)
  Sender: FDA-Public Use
  Company Number: US-ABBVIE-20K-163-3490795-00

PATIENT
  Age: 67 Year
  Sex: Male
  Weight: 88.08 kg

DRUGS (1)
  1. SKYRIZI [Suspect]
     Active Substance: RISANKIZUMAB-RZAA
     Indication: PSORIASIS
     Dosage: STARTED ON WEEK 16,
     Route: 058

REACTIONS (4)
  - Post procedural contusion [Unknown]
  - Post procedural haemorrhage [Unknown]
  - Spinal operation [Unknown]
  - Fall [Recovering/Resolving]

NARRATIVE: CASE EVENT DATE: 202007
